FAERS Safety Report 9596919 (Version 2)
Quarter: 2013Q4

REPORT INFORMATION
  Report Type: Spontaneous
  Country: JP (occurrence: JP)
  Receive Date: 20131004
  Receipt Date: 20131004
  Transmission Date: 20140711
  Serious: Yes (Other)
  Sender: FDA-Public Use
  Company Number: JP-TAKEDA-TCI2013A02377

PATIENT
  Age: 78 Year
  Sex: Female

DRUGS (6)
  1. ACTOS [Suspect]
     Indication: TYPE 2 DIABETES MELLITUS
     Dosage: 30 MG, QD
     Route: 048
  2. UNISIA [Concomitant]
     Route: 048
  3. AMARYL [Concomitant]
     Route: 048
  4. KERLONG [Concomitant]
     Route: 048
  5. CRESTOR [Concomitant]
     Route: 048
  6. BEZATOL [Concomitant]
     Route: 048

REACTIONS (3)
  - Brain natriuretic peptide increased [Recovered/Resolved]
  - Oedema peripheral [Recovered/Resolved]
  - Dyspnoea [Recovered/Resolved]
